FAERS Safety Report 6468492-4 (Version None)
Quarter: 2009Q4

REPORT INFORMATION
  Report Type: 
  Country: None (occurrence: None)
  Receive Date: 20091202
  Receipt Date: 20091202
  Transmission Date: 20100525
  Serious: Yes (Other)
  Sender: FDA-Public Use
  Company Number: None

PATIENT
  Sex: Female

DRUGS (1)
  1. METOPROLOL SUCCINATE [Suspect]
     Indication: HYPERTENSION
     Dosage: 24HR/100MG  1 1/2 DAILY ORAL
     Route: 048
     Dates: start: 20081125, end: 20081215

REACTIONS (1)
  - HEADACHE [None]
